FAERS Safety Report 18882695 (Version 23)
Quarter: 2022Q2

REPORT INFORMATION
  Report Type: Spontaneous
  Country: DK (occurrence: DK)
  Receive Date: 20210211
  Receipt Date: 20220419
  Transmission Date: 20220721
  Serious: Yes (Death, Life-Threatening, Hospitalization, Disabling, Other)
  Sender: FDA-Public Use
  Company Number: GB-KYOWAKIRIN-2020BKK015405AA

PATIENT
  Age: 5 Year
  Sex: Male
  Weight: 9.7 kg

DRUGS (57)
  1. GENTAMICIN [Suspect]
     Active Substance: GENTAMICIN
     Indication: Antibiotic therapy
     Dosage: UNK
     Route: 042
  2. GENTAMICIN [Suspect]
     Active Substance: GENTAMICIN
     Indication: Measles immunisation
     Dosage: UNK
     Route: 065
  3. GENTAMICIN [Suspect]
     Active Substance: GENTAMICIN
     Indication: Pneumococcal sepsis
  4. GENTAMICIN [Suspect]
     Active Substance: GENTAMICIN
     Indication: Mumps immunisation
  5. GENTAMICIN [Suspect]
     Active Substance: GENTAMICIN
     Indication: Rubella immunisation
  6. PIPERACILLIN SODIUM\TAZOBACTAM SODIUM [Suspect]
     Active Substance: PIPERACILLIN SODIUM\TAZOBACTAM SODIUM
     Indication: Respiratory arrest
     Dosage: UNK
     Route: 065
  7. PIPERACILLIN SODIUM\TAZOBACTAM SODIUM [Suspect]
     Active Substance: PIPERACILLIN SODIUM\TAZOBACTAM SODIUM
     Indication: Vomiting
  8. CIPROFLOXACIN [Suspect]
     Active Substance: CIPROFLOXACIN
     Indication: Product used for unknown indication
     Dosage: UNK
     Route: 065
  9. CIPROFLOXACIN [Suspect]
     Active Substance: CIPROFLOXACIN
     Dosage: UNK
     Route: 065
  10. PENICILLIN V [Suspect]
     Active Substance: PENICILLIN V
     Indication: Antibiotic therapy
     Dosage: UNK
     Route: 065
  11. SODIUM CHLORIDE [Suspect]
     Active Substance: SODIUM CHLORIDE
     Indication: Pneumonia
     Dosage: UNK
     Route: 065
  12. FENTANYL [Suspect]
     Active Substance: FENTANYL
     Indication: Product used for unknown indication
     Dosage: UNK
     Route: 065
  13. FENTANYL [Suspect]
     Active Substance: FENTANYL
     Route: 065
  14. POTASSIUM CHLORIDE [Suspect]
     Active Substance: POTASSIUM CHLORIDE
     Indication: Pneumonia
     Dosage: UNK (DARROW LIQ GLUCOSE)
     Route: 065
  15. POTASSIUM CHLORIDE [Suspect]
     Active Substance: POTASSIUM CHLORIDE
     Indication: Pneumonia
     Dosage: UNK
     Route: 065
  16. POTASSIUM CHLORIDE [Suspect]
     Active Substance: POTASSIUM CHLORIDE
     Dosage: UNK
     Route: 065
  17. PENICILLIN G [Suspect]
     Active Substance: PENICILLIN G
     Indication: Product used for unknown indication
     Dosage: UNK
     Route: 065
  18. PENICILLIN G [Suspect]
     Active Substance: PENICILLIN G
     Dosage: UNK
     Route: 065
  19. AMOXICILLIN TRIHYDRATE [Suspect]
     Active Substance: AMOXICILLIN
     Indication: Product used for unknown indication
     Dosage: UNK
     Route: 065
  20. AMOXICILLIN TRIHYDRATE [Suspect]
     Active Substance: AMOXICILLIN
     Dosage: UNK
     Route: 065
     Dates: start: 20160714, end: 20160720
  21. CEFUROXIME AXETIL [Suspect]
     Active Substance: CEFUROXIME AXETIL
     Indication: Antibiotic therapy
     Dosage: UNK
     Route: 042
  22. CEFUROXIME AXETIL [Suspect]
     Active Substance: CEFUROXIME AXETIL
     Dosage: UNK
     Route: 065
  23. CEFUROXIME AXETIL [Suspect]
     Active Substance: CEFUROXIME AXETIL
     Dosage: UNK
     Route: 042
  24. ALBUTEROL [Suspect]
     Active Substance: ALBUTEROL
     Indication: Product used for unknown indication
     Dosage: UNK
     Route: 065
  25. ALBUTEROL [Suspect]
     Active Substance: ALBUTEROL
     Dosage: UNK
     Route: 065
  26. PULMOZYME [Suspect]
     Active Substance: DORNASE ALFA
     Indication: Interstitial lung disease
     Dosage: UNK (PRESSURISED INHALATION)
     Route: 065
  27. PULMOZYME [Suspect]
     Active Substance: DORNASE ALFA
     Dosage: UNK
     Route: 065
  28. PULMOZYME [Suspect]
     Active Substance: DORNASE ALFA
     Dosage: PRESSURISED INHALATION
     Route: 065
  29. MUMPS VIRUS VACCINE LIVE NOS [Suspect]
     Active Substance: MUMPS VIRUS STRAIN B LEVEL JERYL LYNN LIVE ANTIGEN
     Indication: Pneumococcal sepsis
     Dosage: UNK
     Route: 065
  30. MUMPS VIRUS VACCINE LIVE NOS [Suspect]
     Active Substance: MUMPS VIRUS STRAIN B LEVEL JERYL LYNN LIVE ANTIGEN
     Dosage: UNK
     Route: 065
  31. M-M-RVAXPRO [Suspect]
     Active Substance: MEASLES VIRUS STRAIN ENDERS^ ATTENUATED EDMONSTON LIVE ANTIGEN\MUMPS VIRUS STRAIN B LEVEL JERYL LYNN
     Indication: Pneumococcal sepsis
     Dosage: UNK
     Route: 065
  32. M-M-RVAXPRO [Suspect]
     Active Substance: MEASLES VIRUS STRAIN ENDERS^ ATTENUATED EDMONSTON LIVE ANTIGEN\MUMPS VIRUS STRAIN B LEVEL JERYL LYNN
     Indication: Immunisation
  33. TRISODIUM CITRATE DIHYDRATE [Suspect]
     Active Substance: TRISODIUM CITRATE DIHYDRATE
     Indication: Pneumonia
     Dosage: UNK (DARROW LIQ GLUCOSE)
     Route: 065
  34. TRISODIUM CITRATE DIHYDRATE [Suspect]
     Active Substance: TRISODIUM CITRATE DIHYDRATE
     Dosage: UNK
     Route: 065
  35. TRISODIUM CITRATE DIHYDRATE [Suspect]
     Active Substance: TRISODIUM CITRATE DIHYDRATE
     Dosage: UNK
     Route: 065
  36. MEROPENEM [Suspect]
     Active Substance: MEROPENEM
     Indication: Antibiotic therapy
     Dosage: UNK
     Route: 065
  37. MEROPENEM [Suspect]
     Active Substance: MEROPENEM
     Dosage: UNK
     Route: 065
  38. DEXTROSE [Suspect]
     Active Substance: DEXTROSE
     Indication: Pneumonia
     Dosage: UNK (DARROW LIQ GLUCOSE)
     Route: 065
  39. DEXTROSE [Suspect]
     Active Substance: DEXTROSE
     Dosage: UNK
     Route: 065
  40. AMOXICILLIN\CLAVULANATE POTASSIUM [Suspect]
     Active Substance: AMOXICILLIN\CLAVULANATE POTASSIUM
     Indication: Pneumonia
     Dosage: UNK
     Route: 065
     Dates: start: 20150611
  41. AMOXICILLIN\CLAVULANATE POTASSIUM [Suspect]
     Active Substance: AMOXICILLIN\CLAVULANATE POTASSIUM
     Dosage: UNK
     Route: 065
     Dates: start: 20160714, end: 20160720
  42. VENTOLIN [Suspect]
     Active Substance: ALBUTEROL SULFATE
     Indication: Product used for unknown indication
     Dosage: UNK
     Route: 016
  43. PROPOFOL [Suspect]
     Active Substance: PROPOFOL
     Indication: Product used for unknown indication
     Dosage: UNK
     Route: 065
  44. PROPOFOL [Suspect]
     Active Substance: PROPOFOL
     Dosage: UNK
     Route: 065
  45. CLAVULANATE POTASSIUM [Suspect]
     Active Substance: CLAVULANATE POTASSIUM
     Indication: Product used for unknown indication
     Dosage: UNK
     Route: 065
  46. DURAGESIC [Suspect]
     Active Substance: FENTANYL
     Indication: Product used for unknown indication
     Dosage: UNK
     Route: 065
  47. DORNASE ALFA [Suspect]
     Active Substance: DORNASE ALFA
     Indication: Interstitial lung disease
     Dosage: UNK
     Route: 065
  48. DORNASE ALFA [Suspect]
     Active Substance: DORNASE ALFA
     Dosage: UNK (FORMULATION: PRESSURISED INHALATION)
     Route: 065
  49. DORNASE ALFA [Suspect]
     Active Substance: DORNASE ALFA
     Dosage: UNK, FORMULATION: PRESSURISED INHALATION
     Route: 065
  50. CLAVULANATE POTASSIUM [Suspect]
     Active Substance: CLAVULANATE POTASSIUM
     Indication: Product used for unknown indication
     Dosage: UNK
     Route: 065
  51. CLAVULANATE POTASSIUM [Suspect]
     Active Substance: CLAVULANATE POTASSIUM
     Dosage: UNK
     Route: 065
  52. RUBELLA AND MUMPS VIRUS VACCINE, LIVE [Suspect]
     Active Substance: RUBELLA AND MUMPS VIRUS VACCINE, LIVE
     Indication: Pneumococcal sepsis
     Dosage: UNK
     Route: 065
  53. RUBELLA AND MUMPS VIRUS VACCINE, LIVE [Suspect]
     Active Substance: RUBELLA AND MUMPS VIRUS VACCINE, LIVE
     Dosage: UNK
     Route: 065
  54. PIPERACILLIN SODIUM\TAZOBACTAM SODIUM [Suspect]
     Active Substance: PIPERACILLIN SODIUM\TAZOBACTAM SODIUM
     Indication: Respiratory arrest
     Dosage: UNK
     Route: 065
  55. PIPERACILLIN SODIUM\TAZOBACTAM SODIUM [Suspect]
     Active Substance: PIPERACILLIN SODIUM\TAZOBACTAM SODIUM
     Indication: Vomiting
     Route: 065
  56. RUBELLA VIRUS VACCINE LIVE ATTENUATED [Suspect]
     Active Substance: RUBELLA VIRUS STRAIN WISTAR RA 27/3 LIVE ANTIGEN
     Indication: Pneumococcal sepsis
     Dosage: UNK
     Route: 065
  57. RUBELLA VIRUS VACCINE LIVE ATTENUATED [Suspect]
     Active Substance: RUBELLA VIRUS STRAIN WISTAR RA 27/3 LIVE ANTIGEN
     Dosage: UNK
     Route: 065

REACTIONS (41)
  - Ascites [Fatal]
  - Malaise [Fatal]
  - Chest X-ray abnormal [Fatal]
  - Motor dysfunction [Fatal]
  - Condition aggravated [Fatal]
  - Cerebral ischaemia [Fatal]
  - Dyspnoea [Fatal]
  - Circulatory collapse [Fatal]
  - Injury [Fatal]
  - Interstitial lung disease [Fatal]
  - Sputum increased [Fatal]
  - Disease complication [Fatal]
  - Diarrhoea [Fatal]
  - Pneumonia [Fatal]
  - Dysphagia [Fatal]
  - Brain injury [Fatal]
  - Increased bronchial secretion [Fatal]
  - Pyrexia [Fatal]
  - Respiratory tract infection bacterial [Fatal]
  - Inflammation [Fatal]
  - Dehydration [Fatal]
  - Spinal muscular atrophy [Fatal]
  - Tachypnoea [Fatal]
  - Lung consolidation [Fatal]
  - Vomiting [Fatal]
  - Respiratory arrest [Fatal]
  - Atelectasis [Fatal]
  - Metabolic disorder [Fatal]
  - Muscular weakness [Fatal]
  - Intestinal ischaemia [Fatal]
  - Ischaemic cerebral infarction [Fatal]
  - Dysphagia [Fatal]
  - Dyspnoea [Fatal]
  - Lower respiratory tract infection bacterial [Fatal]
  - Secretion discharge [Fatal]
  - Scoliosis [Fatal]
  - Demyelination [Fatal]
  - Motor neurone disease [Fatal]
  - Muscle atrophy [Fatal]
  - Bronchial disorder [Fatal]
  - Lung infiltration [Fatal]

NARRATIVE: CASE EVENT DATE: 20160620
